FAERS Safety Report 8252359-5 (Version None)
Quarter: 2012Q2

REPORT INFORMATION
  Report Type: 
  Country: None (occurrence: None)
  Receive Date: 20120402
  Receipt Date: 20110512
  Transmission Date: 20120825
  Serious: No
  Sender: FDA-Public Use
  Company Number: US-ABBOTT-11P-163-0804562-00

PATIENT
  Sex: Male
  Weight: 84.09 kg

DRUGS (8)
  1. TESTOSTERONE [Suspect]
     Indication: BLOOD TESTOSTERONE DECREASED
     Dosage: DAILY DOSE: 5 GRAM(S) VIA PUMP, 4 PUMPS DAILY IN MORNING
     Route: 062
     Dates: start: 20110425
  2. VALSARTAN [Concomitant]
     Indication: HYPERTENSION
     Dosage: DAILY DOSE:  UNKNOWN
     Route: 065
  3. RANITIDINE HYDROCHLORIDE [Concomitant]
     Indication: GASTRIC DISORDER
     Dosage: DAILY DOSE:  UNKNOWN
     Route: 065
  4. ACETYLSALICYLIC ACID [Concomitant]
     Indication: CARDIAC DISORDER
     Dosage: DAILY DOSE: 81 MILLIGRAM(S)
     Route: 065
  5. LORATADINE [Concomitant]
     Indication: HYPERSENSITIVITY
     Dosage: DAILY DOSE:  UNKNOWN
     Route: 065
  6. FISH OIL [Concomitant]
     Indication: BLOOD CHOLESTEROL INCREASED
     Dosage: DAILY DOSE:  UNKNOWN
     Route: 065
  7. TERAZOSIN HYDROCHLORIDE [Concomitant]
     Indication: HYPERTENSION
     Dosage: DAILY DOSE:  UNKNOWN
     Route: 065
  8. AMLODIPINE BESILATE [Concomitant]
     Indication: HYPERTENSION
     Dosage: DAILY DOSE:  UNKNOWN
     Route: 065

REACTIONS (4)
  - HEART RATE IRREGULAR [None]
  - SKIN DISORDER [None]
  - PSYCHOMOTOR HYPERACTIVITY [None]
  - SCIATICA [None]
